FAERS Safety Report 13214675 (Version 2)
Quarter: 2017Q1

REPORT INFORMATION
  Report Type: Spontaneous
  Country: US (occurrence: US)
  Receive Date: 20170210
  Receipt Date: 20170310
  Transmission Date: 20170428
  Serious: No
  Sender: FDA-Public Use
  Company Number: US-LUNDBECK-DKLU2025568

PATIENT
  Sex: Male

DRUGS (2)
  1. NORTHERA [Suspect]
     Active Substance: DROXIDOPA
     Indication: PRODUCT USED FOR UNKNOWN INDICATION
     Dosage: SCHEDULE C, COMPLETED
     Route: 065
     Dates: start: 20160601
  2. NORTHERA [Suspect]
     Active Substance: DROXIDOPA
     Route: 065

REACTIONS (2)
  - Dizziness [Recovered/Resolved]
  - Hypotension [Recovered/Resolved]
